FAERS Safety Report 6817598-6 (Version None)
Quarter: 2010Q3

REPORT INFORMATION
  Report Type: 
  Country: None (occurrence: None)
  Receive Date: 20100706
  Receipt Date: 20100623
  Transmission Date: 20110219
  Serious: Yes (Other)
  Sender: FDA-Public Use
  Company Number: PHEH2007US12302

PATIENT
  Sex: Female

DRUGS (7)
  1. ZOMETA [Suspect]
  2. AREDIA [Suspect]
  3. STEROIDS NOS [Concomitant]
  4. KLONOPIN [Concomitant]
  5. ZOLPIDEM [Concomitant]
  6. MULTI-VITAMINS [Concomitant]
  7. MIRALAX [Concomitant]

REACTIONS (61)
  - ABDOMINAL PAIN UPPER [None]
  - ABSCESS DRAINAGE [None]
  - ACUTE RESPIRATORY DISTRESS SYNDROME [None]
  - ANHEDONIA [None]
  - ANISOCYTOSIS [None]
  - ANXIETY [None]
  - ASTHENIA [None]
  - BACK PAIN [None]
  - BLOOD CALCIUM DECREASED [None]
  - BLOOD GLUCOSE INCREASED [None]
  - BLOOD LACTATE DEHYDROGENASE INCREASED [None]
  - BONE DISORDER [None]
  - BONE LESION [None]
  - BONE PAIN [None]
  - BRONCHITIS [None]
  - COUGH [None]
  - DEFORMITY [None]
  - DENTAL CARIES [None]
  - DENTURE WEARER [None]
  - DEPRESSION [None]
  - DISCOMFORT [None]
  - DRUG TOXICITY [None]
  - EMOTIONAL DISTRESS [None]
  - ENDOTRACHEAL INTUBATION [None]
  - EXOSTOSIS [None]
  - FATIGUE [None]
  - GIANT CELL TUMOUR OF TENDON SHEATH [None]
  - GLOMERULAR FILTRATION RATE DECREASED [None]
  - GROIN PAIN [None]
  - HAIR FOLLICLE TUMOUR BENIGN [None]
  - HYPOPHAGIA [None]
  - INFECTION [None]
  - INJURY [None]
  - INTERVERTEBRAL DISC PROTRUSION [None]
  - INTESTINAL OBSTRUCTION [None]
  - LIFE EXPECTANCY SHORTENED [None]
  - LOWER RESPIRATORY TRACT INFECTION [None]
  - LYMPHADENOPATHY [None]
  - METASTASES TO BONE [None]
  - METASTASES TO SPINE [None]
  - MULTIPLE MYELOMA [None]
  - NEUROPATHY PERIPHERAL [None]
  - OEDEMA PERIPHERAL [None]
  - OSTEONECROSIS [None]
  - OSTEONECROSIS OF JAW [None]
  - OSTEOPENIA [None]
  - PAIN [None]
  - PHYSICAL DISABILITY [None]
  - PLANTAR FASCIITIS [None]
  - PLASMACYTOSIS [None]
  - PLEURITIC PAIN [None]
  - PNEUMONIA [None]
  - POOR PERSONAL HYGIENE [None]
  - RENAL FAILURE [None]
  - RIB FRACTURE [None]
  - SEPSIS [None]
  - SYSTEMIC INFLAMMATORY RESPONSE SYNDROME [None]
  - THYROID NEOPLASM [None]
  - TOOTH EXTRACTION [None]
  - TOOTH REPAIR [None]
  - UPPER RESPIRATORY TRACT INFECTION [None]
